FAERS Safety Report 25941771 (Version 3)
Quarter: 2025Q4

REPORT INFORMATION
  Report Type: Spontaneous
  Country: JP (occurrence: JP)
  Receive Date: 20251020
  Receipt Date: 20251230
  Transmission Date: 20260117
  Serious: Yes (Other)
  Sender: ELI LILLY AND COMPANY
  Company Number: JP-ELI_LILLY_AND_COMPANY-JP202510019067AA

PATIENT
  Age: 52 Year
  Sex: Female
  Weight: 65 kg

DRUGS (11)
  1. MOUNJARO [Suspect]
     Active Substance: TIRZEPATIDE
     Indication: Type 2 diabetes mellitus
     Dosage: 2.5 MG
     Route: 058
     Dates: start: 20250428
  2. MOUNJARO [Suspect]
     Active Substance: TIRZEPATIDE
     Dosage: 5 MG
     Route: 058
     Dates: start: 20250602
  3. MOUNJARO [Suspect]
     Active Substance: TIRZEPATIDE
     Dosage: 7.5 MG
     Route: 058
     Dates: start: 20250707
  4. MOUNJARO [Suspect]
     Active Substance: TIRZEPATIDE
     Dosage: 10 MG
     Route: 058
     Dates: start: 20250804
  5. MOUNJARO [Suspect]
     Active Substance: TIRZEPATIDE
     Dosage: 12.5 MG
     Route: 058
     Dates: start: 20250901
  6. INDAPAMIDE [Concomitant]
     Active Substance: INDAPAMIDE
     Indication: Hypertension
     Dosage: 1 MG
     Dates: start: 20201130
  7. ESAXERENONE [Concomitant]
     Active Substance: ESAXERENONE
     Indication: Hypertension
     Dosage: 1.25 MG
     Dates: start: 20220214
  8. AMLODIPINE BESYLATE\AZILSARTAN [Concomitant]
     Active Substance: AMLODIPINE BESYLATE\AZILSARTAN
     Indication: Hypertension
     Dosage: UNK
     Dates: start: 20220704
  9. AMLODIPINE [Concomitant]
     Active Substance: AMLODIPINE BESYLATE
     Indication: Hypertension
     Dosage: 5 MG
     Dates: start: 20240701
  10. DAPAGLIFLOZIN [Concomitant]
     Active Substance: DAPAGLIFLOZIN
     Indication: Type 2 diabetes mellitus
     Dosage: 10 MG
     Dates: start: 20200713
  11. ATORVASTATIN [Concomitant]
     Active Substance: ATORVASTATIN
     Indication: Hypercholesterolaemia
     Dosage: 5 MG
     Dates: start: 20200817

REACTIONS (4)
  - Skin necrosis [Recovering/Resolving]
  - Pruritus [Recovering/Resolving]
  - Injection site pruritus [Unknown]
  - Injection site pain [Unknown]

NARRATIVE: CASE EVENT DATE: 20251006
